FAERS Safety Report 5213831-5 (Version None)
Quarter: 2007Q1

REPORT INFORMATION
  Report Type: 
  Country: None (occurrence: None)
  Receive Date: 20070119
  Receipt Date: 20070110
  Transmission Date: 20070707
  Serious: Yes (Other)
  Sender: FDA-Public Use
  Company Number: US-PFIZER INC-2004077855

PATIENT
  Sex: Female

DRUGS (18)
  1. NEURONTIN [Suspect]
     Indication: BIPOLAR DISORDER
     Dosage: DAILY DOSE:300MG
     Route: 048
     Dates: start: 20020808, end: 20021119
  2. NEURONTIN [Suspect]
     Indication: ANGER
  3. LEVOTHROID [Concomitant]
     Indication: HYPOTHYROIDISM
  4. CLINDAMYCIN [Concomitant]
  5. SEROQUEL [Concomitant]
  6. LITHIUM CARBONATE [Concomitant]
  7. VITAMIN CAP [Concomitant]
  8. PAXIL [Concomitant]
  9. CLOZARIL [Concomitant]
  10. ATIVAN [Concomitant]
  11. COLACE [Concomitant]
  12. PROVIGIL [Concomitant]
  13. TOPAMAX [Concomitant]
  14. NALTREXONE [Concomitant]
  15. DEPO-PROVERA 150 [Concomitant]
  16. ALBUTEROL [Concomitant]
     Route: 055
  17. ALL OTHER THERAPEUTIC PRODUCTS [Concomitant]
  18. ZOLOFT [Concomitant]
     Indication: DEPRESSION

REACTIONS (15)
  - ABNORMAL BEHAVIOUR [None]
  - AGGRESSION [None]
  - ANXIETY [None]
  - COMA [None]
  - CONCUSSION [None]
  - DEPRESSION [None]
  - DRUG ABUSER [None]
  - DRUG INEFFECTIVE [None]
  - DYSARTHRIA [None]
  - FEELING DRUNK [None]
  - GAIT DISTURBANCE [None]
  - INJURY [None]
  - PAIN [None]
  - SUICIDE ATTEMPT [None]
  - SYNCOPE [None]
